FAERS Safety Report 24333766 (Version 3)
Quarter: 2024Q4

REPORT INFORMATION
  Report Type: Report from Study
  Country: CO (occurrence: CO)
  Receive Date: 20240918
  Receipt Date: 20241226
  Transmission Date: 20250115
  Serious: Yes (Other)
  Sender: JOHNSON AND JOHNSON
  Company Number: CO-JNJFOC-20240866967

PATIENT
  Age: 68 Year
  Sex: Female
  Weight: 63 kg

DRUGS (5)
  1. SIMPONI [Suspect]
     Active Substance: GOLIMUMAB
     Indication: Rheumatoid arthritis
     Route: 058
     Dates: start: 20150506
  2. SIMPONI [Suspect]
     Active Substance: GOLIMUMAB
     Dosage: DATE OF LAST ADMINISTRATION: 05-AUG-2024
     Route: 058
     Dates: start: 20240610
  3. SIMPONI [Suspect]
     Active Substance: GOLIMUMAB
     Route: 058
  4. ACETAMINOPHEN\CODEINE PHOSPHATE [Concomitant]
     Active Substance: ACETAMINOPHEN\CODEINE PHOSPHATE
     Dosage: MORNING, NOON, AND NIGHT
     Route: 048
  5. COVID-19 VACCINE [Concomitant]
     Dates: start: 202105

REACTIONS (6)
  - Hysterectomy [Unknown]
  - Femur fracture [Unknown]
  - Accident [Unknown]
  - Foot deformity [Unknown]
  - Scoliosis [Not Recovered/Not Resolved]
  - Off label use [Unknown]

NARRATIVE: CASE EVENT DATE: 20240101
